FAERS Safety Report 18406837 (Version 1)
Quarter: 2020Q4

REPORT INFORMATION
  Report Type: Report from Study
  Country: None (occurrence: CA)
  Receive Date: 20201021
  Receipt Date: 20201021
  Transmission Date: 20210114
  Serious: Yes (Hospitalization, Other)
  Sender: FDA-Public Use
  Company Number: CA-ABBVIE-20K-028-3612969-00

PATIENT
  Age: 37 Year
  Sex: Male

DRUGS (2)
  1. HUMIRA [Suspect]
     Active Substance: ADALIMUMAB
     Indication: CROHN^S DISEASE
     Route: 058
     Dates: start: 20150915
  2. HUMIRA [Suspect]
     Active Substance: ADALIMUMAB
     Route: 058

REACTIONS (16)
  - Nasal injury [Recovered/Resolved]
  - Hepatic rupture [Recovered/Resolved]
  - Rotator cuff syndrome [Recovered/Resolved]
  - Scapula fracture [Recovered/Resolved]
  - Chest injury [Recovered/Resolved]
  - Spinal fracture [Recovered/Resolved]
  - Cerebrovascular accident [Unknown]
  - Therapeutic response shortened [Not Recovered/Not Resolved]
  - Diarrhoea [Not Recovered/Not Resolved]
  - Clavicle fracture [Recovered/Resolved]
  - Ankle fracture [Recovered/Resolved]
  - Surgery [Unknown]
  - Skin laceration [Recovered/Resolved]
  - Flatulence [Not Recovered/Not Resolved]
  - Lung perforation [Recovered/Resolved]
  - Road traffic accident [Recovered/Resolved]

NARRATIVE: CASE EVENT DATE: 20180303
